FAERS Safety Report 7284962-3 (Version None)
Quarter: 2011Q1

REPORT INFORMATION
  Report Type: 
  Country: None (occurrence: None)
  Receive Date: 20110210
  Receipt Date: 20101216
  Transmission Date: 20110831
  Serious: Yes (Other)
  Sender: FDA-Public Use
  Company Number: US-BAYER-201033395NA

PATIENT
  Sex: Female

DRUGS (4)
  1. YAZ [Suspect]
     Indication: ORAL CONTRACEPTION
     Route: 065
     Dates: start: 20080801, end: 20100601
  2. CLONIDINE HYDROCHLORIDE [Concomitant]
  3. UNCODEABLE ^UNCLASSIFIABLE^ [Concomitant]
  4. YASMIN [Suspect]
     Indication: ORAL CONTRACEPTION
     Route: 065
     Dates: start: 20070601, end: 20080701

REACTIONS (2)
  - CHOLECYSTITIS [None]
  - CHOLECYSTITIS CHRONIC [None]
